FAERS Safety Report 23676805 (Version 1)
Quarter: 2024Q1

REPORT INFORMATION
  Report Type: Report from Study
  Country: NL (occurrence: NL)
  Receive Date: 20240327
  Receipt Date: 20240327
  Transmission Date: 20240410
  Serious: Yes (Other)
  Sender: FDA-Public Use
  Company Number: NL-AMGEN-NLDSL2022226927

PATIENT
  Age: 44 Year
  Sex: Male

DRUGS (7)
  1. XGEVA [Suspect]
     Active Substance: DENOSUMAB
     Indication: Prophylaxis
     Dosage: 120 MILLIGRAM/1.7 ML, Q4WK
     Route: 058
     Dates: start: 20220908
  2. XGEVA [Suspect]
     Active Substance: DENOSUMAB
     Dosage: 120 MILLIGRAM/1.7 ML, Q4WK
     Route: 058
  3. CALCIUM CARBONATE\CHOLECALCIFEROL [Concomitant]
     Active Substance: CALCIUM CARBONATE\CHOLECALCIFEROL
     Indication: Product used for unknown indication
     Dosage: 1.25G/800IE (500MG CA)
     Route: 065
  4. TAGRISSO [Concomitant]
     Active Substance: OSIMERTINIB
     Indication: Product used for unknown indication
     Dosage: UNK
     Route: 065
  5. FENTANYL [Concomitant]
     Active Substance: FENTANYL\FENTANYL CITRATE
     Dosage: 200UG 0-2D1T
  6. OSIMERTINIB [Concomitant]
     Active Substance: OSIMERTINIB
     Dosage: 80 MILLIGRAM, QD
  7. PANTOPRAZOLE SODIUM [Concomitant]
     Active Substance: PANTOPRAZOLE SODIUM
     Dosage: 20 MILLIGRAM, QD

REACTIONS (4)
  - Metastases to bone [Not Recovered/Not Resolved]
  - Orchitis noninfective [Not Recovered/Not Resolved]
  - Intentional dose omission [Unknown]
  - Therapeutic product effect decreased [Unknown]

NARRATIVE: CASE EVENT DATE: 20221227
